FAERS Safety Report 24000587 (Version 1)
Quarter: 2024Q2

REPORT INFORMATION
  Report Type: Spontaneous
  Country: US (occurrence: None)
  Receive Date: 20240621
  Receipt Date: 20240621
  Transmission Date: 20240716
  Serious: Yes (Congenital Anomaly)
  Sender: FDA-Public Use
  Company Number: None

PATIENT
  Sex: Female

DRUGS (1)
  1. TRAMADOL HCL [Suspect]
     Active Substance: TRAMADOL HYDROCHLORIDE

REACTIONS (3)
  - Exposure during pregnancy [None]
  - Amblyopia [None]
  - Maternal drugs affecting foetus [None]

NARRATIVE: CASE EVENT DATE: 20230419
